FAERS Safety Report 9296840 (Version 1)
Quarter: 2013Q2

REPORT INFORMATION
  Report Type: Spontaneous
  Country: US (occurrence: US)
  Receive Date: 20130517
  Receipt Date: 20130517
  Transmission Date: 20140414
  Serious: Yes (Other)
  Sender: FDA-Public Use
  Company Number: US-PFIZER INC-2012052339

PATIENT
  Age: 49 Year
  Sex: Male

DRUGS (2)
  1. CHANTIX [Suspect]
     Dosage: STARTING MONTH PACK
     Dates: start: 20070813
  2. CHANTIX [Suspect]
     Dosage: 1MG CONTINUE MONTH PACK
     Dates: start: 20080723, end: 20080830

REACTIONS (1)
  - Suicidal ideation [Unknown]
